FAERS Safety Report 18910797 (Version 11)
Quarter: 2021Q3

REPORT INFORMATION
  Report Type: Report from Study
  Country: AR (occurrence: AR)
  Receive Date: 20210218
  Receipt Date: 20210820
  Transmission Date: 20211014
  Serious: Yes (Hospitalization, Other)
  Sender: FDA-Public Use
  Company Number: AR-TAKEDA-2021TUS003529

PATIENT
  Age: 50 Year
  Sex: Male
  Weight: 78 kg

DRUGS (11)
  1. ATENOLOL. [Concomitant]
     Active Substance: ATENOLOL
     Indication: AORTIC VALVE REPLACEMENT
     Dosage: UNK
     Route: 065
  2. DEXAMETHASONE. [Concomitant]
     Active Substance: DEXAMETHASONE
     Dosage: 8 MILLIGRAM, QD
     Route: 065
  3. ACENOCOUMAROL [Concomitant]
     Active Substance: ACENOCOUMAROL
     Indication: ANTICOAGULANT THERAPY
  4. BUPROPION. [Concomitant]
     Active Substance: BUPROPION
     Indication: TOBACCO ABUSE
     Dosage: 300 MILLIGRAM, QD
     Route: 065
  5. ENOXAPARIN [Concomitant]
     Active Substance: ENOXAPARIN
     Indication: AORTIC VALVE REPLACEMENT
     Dosage: 80 MILLIGRAM, QD
     Route: 065
  6. ENOXAPARIN [Concomitant]
     Active Substance: ENOXAPARIN
     Indication: ANTICOAGULANT THERAPY
  7. DEXAMETHASONE. [Concomitant]
     Active Substance: DEXAMETHASONE
     Indication: METASTASES TO CENTRAL NERVOUS SYSTEM
     Dosage: 24 MILLIGRAM, QD
     Route: 065
  8. MINOCYCLINE [Concomitant]
     Active Substance: MINOCYCLINE HYDROCHLORIDE
     Indication: PARONYCHIA
     Dosage: 100 MILLIGRAM, QD
     Route: 048
  9. BRIGATINIB [Suspect]
     Active Substance: BRIGATINIB
     Indication: LUNG NEOPLASM MALIGNANT
     Dosage: 180 MILLIGRAM, QD
     Route: 065
     Dates: start: 20210107
  10. ACENOCOUMAROL [Concomitant]
     Active Substance: ACENOCOUMAROL
     Indication: AORTIC VALVE REPLACEMENT
     Dosage: UNK
     Route: 065
  11. MINOCYCLINE [Concomitant]
     Active Substance: MINOCYCLINE HYDROCHLORIDE
     Dosage: 180 MILLIGRAM
     Route: 065
     Dates: start: 20210107

REACTIONS (10)
  - Lipase increased [Recovered/Resolved]
  - Hyperamylasaemia [Recovered/Resolved]
  - Blood cholesterol increased [Recovering/Resolving]
  - Paronychia [Recovered/Resolved]
  - Alanine aminotransferase increased [Recovered/Resolved]
  - Hyperglycaemia [Recovered/Resolved]
  - Thrombocytopenia [Recovered/Resolved]
  - Haematuria [Recovered/Resolved]
  - Aspartate aminotransferase increased [Recovered/Resolved]
  - Dermatitis acneiform [Recovering/Resolving]

NARRATIVE: CASE EVENT DATE: 20210113
